FAERS Safety Report 8142876-0 (Version None)
Quarter: 2012Q1

REPORT INFORMATION
  Report Type: 
  Country: None (occurrence: None)
  Receive Date: 20120217
  Receipt Date: 20120207
  Transmission Date: 20120608
  Serious: Yes (Disabling)
  Sender: FDA-Public Use
  Company Number: CA-BRISTOL-MYERS SQUIBB COMPANY-16395188

PATIENT
  Age: 53 Year
  Sex: Male

DRUGS (6)
  1. NYSTATIN [Concomitant]
     Dates: start: 20120206
  2. CISPLATIN [Suspect]
     Indication: HEAD AND NECK CANCER
     Route: 065
     Dates: start: 20120125
  3. PROCHLORPERAZINE [Concomitant]
     Dates: start: 20120130
  4. ACETAMINOPHEN [Concomitant]
     Dates: start: 20120125
  5. CETUXIMAB [Suspect]
     Indication: HEAD AND NECK CANCER
     Dosage: LAST DOSE ON 01FEB2012 BEING THE SECOND INFUSION
     Route: 065
     Dates: start: 20120125
  6. FLUOROURACIL [Suspect]
     Indication: HEAD AND NECK CANCER
     Dosage: 1 DF=1867UNITS NOS.FREQUENCY-4DAYS/3WEEKS.
     Route: 065
     Dates: start: 20120125

REACTIONS (1)
  - CEREBRAL INFARCTION [None]
